FAERS Safety Report 24358986 (Version 3)
Quarter: 2025Q3

REPORT INFORMATION
  Report Type: Report from Study
  Country: US (occurrence: US)
  Receive Date: 20240924
  Receipt Date: 20250905
  Transmission Date: 20251021
  Serious: No
  Sender: SUNOVION
  Company Number: US-SUMITOMO PHARMA SWITZERLAND GMBH-2024SPA002392

PATIENT
  Age: 71 Year
  Sex: Male

DRUGS (2)
  1. ORGOVYX [Suspect]
     Active Substance: RELUGOLIX
     Indication: Prostate cancer
     Route: 048
     Dates: start: 20240701, end: 20240701
  2. ORGOVYX [Suspect]
     Active Substance: RELUGOLIX
     Dosage: 120 MG, QD
     Route: 048
     Dates: start: 20240702

REACTIONS (9)
  - Radiotherapy [Recovered/Resolved]
  - Flatulence [Recovered/Resolved]
  - Lethargy [Unknown]
  - Muscle atrophy [Unknown]
  - Hypotonia [Unknown]
  - Arthralgia [Unknown]
  - Diarrhoea [Recovered/Resolved]
  - Hot flush [Unknown]
  - Weight increased [Unknown]
